FAERS Safety Report 6310054-3 (Version None)
Quarter: 2009Q3

REPORT INFORMATION
  Report Type: 
  Country: None (occurrence: None)
  Receive Date: 20090814
  Receipt Date: 20090806
  Transmission Date: 20100115
  Serious: Yes (Other)
  Sender: FDA-Public Use
  Company Number: GB-GENENTECH-288237

PATIENT
  Age: 76 Year
  Sex: Female

DRUGS (1)
  1. SOMATROPIN [Suspect]
     Indication: HYPOPITUITARISM

REACTIONS (1)
  - NEOPLASM PROGRESSION [None]
